FAERS Safety Report 6342184-4 (Version None)
Quarter: 2009Q3

REPORT INFORMATION
  Report Type: 
  Country: None (occurrence: None)
  Receive Date: 20090903
  Receipt Date: 20090903
  Transmission Date: 20100115
  Serious: Yes (Other)
  Sender: FDA-Public Use
  Company Number: None

PATIENT
  Sex: Female
  Weight: 63.5036 kg

DRUGS (1)
  1. AMLODIPINE [Suspect]
     Indication: HYPERTENSION
     Dosage: 10 MG Q.D. P.O.
     Route: 048
     Dates: start: 20090801

REACTIONS (4)
  - CONTUSION [None]
  - COUGH [None]
  - JOINT SWELLING [None]
  - RASH PRURITIC [None]
